FAERS Safety Report 6801722-5 (Version None)
Quarter: 2010Q2

REPORT INFORMATION
  Report Type: 
  Country: None (occurrence: None)
  Receive Date: 20100629
  Receipt Date: 20100623
  Transmission Date: 20101027
  Serious: Yes (Other)
  Sender: FDA-Public Use
  Company Number: BR-SANOFI-AVENTIS-2010SA034652

PATIENT
  Age: 80 Year
  Sex: Female
  Weight: 85 kg

DRUGS (4)
  1. LANTUS [Suspect]
     Route: 058
     Dates: start: 20091201
  2. LANTUS [Suspect]
     Route: 058
     Dates: start: 20100101
  3. SOLOSTAR [Suspect]
     Dates: start: 20091201
  4. SOLOSTAR [Suspect]
     Dates: start: 20100101

REACTIONS (3)
  - DYSPNOEA [None]
  - MUSCULOSKELETAL CHEST PAIN [None]
  - PLEURAL EFFUSION [None]
